FAERS Safety Report 18051428 (Version 2)
Quarter: 2020Q3

REPORT INFORMATION
  Report Type: Report from Study
  Country: None (occurrence: PR)
  Receive Date: 20200722
  Receipt Date: 20200723
  Transmission Date: 20201103
  Serious: Yes (Other)
  Sender: FDA-Public Use
  Company Number: PR-ABBVIE-20K-131-3488994-00

PATIENT
  Sex: Female
  Weight: 48.58 kg

DRUGS (8)
  1. HUMIRA [Suspect]
     Active Substance: ADALIMUMAB
     Indication: RHEUMATOID ARTHRITIS
     Route: 058
     Dates: start: 2014
  2. PREDNISONE. [Concomitant]
     Active Substance: PREDNISONE
     Indication: PAIN
     Route: 048
     Dates: start: 202005
  3. PEPCID [Concomitant]
     Active Substance: FAMOTIDINE
     Indication: GASTRIC DISORDER
     Route: 048
  4. SYNTHROID [Concomitant]
     Active Substance: LEVOTHYROXINE SODIUM
     Indication: THYROID DISORDER
     Route: 048
  5. ATORVASTATIN [Concomitant]
     Active Substance: ATORVASTATIN
     Indication: BLOOD CHOLESTEROL
     Route: 048
  6. CITALOPRAM [Concomitant]
     Active Substance: CITALOPRAM HYDROBROMIDE
     Indication: ASTHENIA
     Route: 048
     Dates: start: 2017
  7. LOSARTAN. [Concomitant]
     Active Substance: LOSARTAN
     Indication: BLOOD PRESSURE MANAGEMENT
     Route: 048
     Dates: start: 2017
  8. METOPROLOL. [Concomitant]
     Active Substance: METOPROLOL
     Indication: BLOOD PRESSURE MANAGEMENT
     Route: 048
     Dates: start: 2015

REACTIONS (6)
  - Loss of consciousness [Recovering/Resolving]
  - Hypertension [Not Recovered/Not Resolved]
  - Abdominal discomfort [Recovering/Resolving]
  - Hypotension [Recovering/Resolving]
  - Head injury [Unknown]
  - Fall [Recovered/Resolved]

NARRATIVE: CASE EVENT DATE: 202006
